FAERS Safety Report 24373120 (Version 1)
Quarter: 2024Q3

REPORT INFORMATION
  Report Type: Spontaneous
  Country: GB (occurrence: GB)
  Receive Date: 20240927
  Receipt Date: 20240927
  Transmission Date: 20241017
  Serious: Yes (Other)
  Sender: PERRIGO
  Company Number: None

PATIENT
  Age: 27 Year
  Sex: Male
  Weight: 96 kg

DRUGS (17)
  1. IBUPROFEN [Suspect]
     Active Substance: IBUPROFEN
     Indication: Ill-defined disorder
     Route: 065
     Dates: start: 20240704
  2. SUMATRIPTAN [Concomitant]
     Active Substance: SUMATRIPTAN
     Indication: Ill-defined disorder
     Dosage: TAKE ONE AS DIRECTED
     Route: 065
     Dates: start: 20240902, end: 20240908
  3. BETAMETHASONE VALERATE [Concomitant]
     Active Substance: BETAMETHASONE VALERATE
     Indication: Ill-defined disorder
     Dosage: APPLY DAILY FOR TAKE ONE WEEK AND THEN USE TWICE WEEKLY
     Route: 065
     Dates: start: 20240812
  4. PREDNISOLONE [Concomitant]
     Active Substance: PREDNISOLONE
     Indication: Ill-defined disorder
     Dosage: 8 DOSAGE FORM, DAILY FOR 3 OR 5 DAYS
     Route: 065
     Dates: start: 20240704, end: 20240709
  5. AMITRIPTYLINE HYDROCHLORIDE [Concomitant]
     Active Substance: AMITRIPTYLINE HYDROCHLORIDE
     Indication: Ill-defined disorder
     Dosage: 1 DOSAGE FORM, AT BED TIME
     Route: 065
     Dates: start: 20240902
  6. CETRABEN [LIGHT LIQUID PARAFFIN;WHITE SOFT PARAFFIN] [Concomitant]
     Indication: Ill-defined disorder
     Dosage: APPLY 3-4 TIMES, DAILY
     Route: 065
     Dates: start: 20240812
  7. MOMETASONE [Concomitant]
     Active Substance: MOMETASONE
     Indication: Ill-defined disorder
     Dosage: 2 DOSAGE FORM (SPRAY), DAILY, INTO EACH NOSTRIL
     Route: 065
     Dates: start: 20240821
  8. TACROLIMUS [Concomitant]
     Active Substance: TACROLIMUS
     Indication: Ill-defined disorder
     Dosage: APPLY TWO TIMES A DAY FOR 2-4 WEEKS AND THEN USE ON...
     Route: 065
     Dates: start: 20240812
  9. BECLOMETHASONE\FORMOTEROL [Concomitant]
     Active Substance: BECLOMETHASONE\FORMOTEROL
     Indication: Ill-defined disorder
     Dosage: 2 DOSAGE FORM, TWO TIMES A DAY(PUFFS)
     Route: 065
     Dates: start: 20231218
  10. LOPERAMIDE [Concomitant]
     Active Substance: LOPERAMIDE
     Indication: Ill-defined disorder
     Dosage: 1 DOSAGE FORM, PRN
     Dates: start: 20231218
  11. LOPERAMIDE [Concomitant]
     Active Substance: LOPERAMIDE
     Indication: Diarrhoea
  12. MIRTAZAPINE [Concomitant]
     Active Substance: MIRTAZAPINE
     Indication: Ill-defined disorder
     Dosage: 1 DOSAGE FORM, NOCTE
     Route: 065
     Dates: start: 20231218
  13. ALBUTEROL [Concomitant]
     Active Substance: ALBUTEROL
     Indication: Ill-defined disorder
     Dosage: INHALE 2 DOSAGE FORM, AS NECESSARY
     Route: 065
     Dates: start: 20231218
  14. COAL TAR\COCONUT OIL\SALICYLIC ACID [Concomitant]
     Active Substance: COAL TAR\COCONUT OIL\SALICYLIC ACID
     Indication: Ill-defined disorder
     Dosage: USE DAILY
     Route: 065
     Dates: start: 20240417
  15. KETOCONAZOLE [Concomitant]
     Active Substance: KETOCONAZOLE
     Indication: Ill-defined disorder
     Dosage: USE AS DIRECTED
     Route: 065
     Dates: start: 20240417
  16. TERBINAFINE [Concomitant]
     Active Substance: TERBINAFINE
     Indication: Ill-defined disorder
     Dosage: APPLY TWO TIMES A DAY
     Route: 065
     Dates: start: 20240611
  17. IBUPROFEN\LEVOMENTHOL [Suspect]
     Active Substance: IBUPROFEN\LEVOMENTHOL
     Indication: Adverse drug reaction
     Route: 048
     Dates: start: 20240717, end: 20240717

REACTIONS (2)
  - Condition aggravated [Unknown]
  - Asthma [Recovered/Resolved]

NARRATIVE: CASE EVENT DATE: 20240717
